FAERS Safety Report 14139901 (Version 3)
Quarter: 2018Q2

REPORT INFORMATION
  Report Type: Spontaneous
  Country: JP (occurrence: JP)
  Receive Date: 20171030
  Receipt Date: 20180418
  Transmission Date: 20180711
  Serious: Yes (Other)
  Sender: FDA-Public Use
  Company Number: JP-ACCORD-060270

PATIENT
  Sex: Male

DRUGS (5)
  1. CARBOPLATIN. [Suspect]
     Active Substance: CARBOPLATIN
     Indication: METASTATIC SQUAMOUS CELL CARCINOMA
     Dosage: AREA UNDER THE CURVE, 5 MG/ML/MIN; 1-H IV INFUSION ON DAY 1
     Route: 042
     Dates: start: 201411
  2. ACETYLSALICYLIC ACID [Concomitant]
     Active Substance: ASPIRIN
     Indication: ANTIPLATELET THERAPY
  3. TICLOPIDINE [Concomitant]
     Active Substance: TICLOPIDINE
     Indication: ANTIPLATELET THERAPY
  4. FLUOROURACIL. [Suspect]
     Active Substance: FLUOROURACIL
     Indication: METASTATIC SQUAMOUS CELL CARCINOMA
     Dosage: PER DAY FOR 4 DAYS
     Dates: start: 201411
  5. CETUXIMAB. [Suspect]
     Active Substance: CETUXIMAB
     Indication: METASTATIC SQUAMOUS CELL CARCINOMA
     Dosage: INITIAL DOSE
     Dates: start: 201411

REACTIONS (1)
  - Cardiac ventricular thrombosis [Recovered/Resolved]
